FAERS Safety Report 4637650-3 (Version None)
Quarter: 2005Q2

REPORT INFORMATION
  Report Type: 
  Country: None (occurrence: None)
  Receive Date: 20050418
  Receipt Date: 20050412
  Transmission Date: 20051028
  Serious: Yes (Death)
  Sender: FDA-Public Use
  Company Number: 2005-UK-00307UK

PATIENT
  Sex: Male

DRUGS (7)
  1. DIGOXIN [Suspect]
     Indication: DRUG USE FOR UNKNOWN INDICATION
     Route: 065
  2. SALMETEROL [Suspect]
     Indication: DRUG USE FOR UNKNOWN INDICATION
     Route: 055
  3. SALBUTAMOL [Suspect]
     Indication: DRUG USE FOR UNKNOWN INDICATION
     Route: 055
  4. SPIRIVA [Suspect]
     Indication: DRUG USE FOR UNKNOWN INDICATION
     Route: 055
  5. OMEPRAZOLE [Suspect]
     Indication: DRUG USE FOR UNKNOWN INDICATION
     Route: 065
  6. NITRAZEPAM [Suspect]
     Indication: DRUG USE FOR UNKNOWN INDICATION
     Route: 065
  7. CO-PROXAMOL [Suspect]
     Indication: DRUG USE FOR UNKNOWN INDICATION
     Route: 065

REACTIONS (2)
  - CHRONIC OBSTRUCTIVE PULMONARY DISEASE [None]
  - EMPHYSEMA [None]
